FAERS Safety Report 22290820 (Version 1)
Quarter: 2023Q2

REPORT INFORMATION
  Report Type: Spontaneous
  Country: GB (occurrence: GB)
  Receive Date: 20230506
  Receipt Date: 20230506
  Transmission Date: 20230721
  Serious: Yes (Hospitalization, Disabling, Other)
  Sender: FDA-Public Use
  Company Number: GB-MHRA-MED-202304211705560880-QBJWL

PATIENT
  Sex: Female

DRUGS (1)
  1. MONTELUKAST [Suspect]
     Active Substance: MONTELUKAST SODIUM
     Indication: Asthma
     Dosage: 10MG ONCE DAILY IN EVE
     Route: 065
     Dates: start: 20220624, end: 20220711

REACTIONS (13)
  - Alopecia [Recovered/Resolved with Sequelae]
  - Anxiety [Not Recovered/Not Resolved]
  - Nausea [Recovered/Resolved with Sequelae]
  - Decreased appetite [Recovering/Resolving]
  - Depressed mood [Recovering/Resolving]
  - Diarrhoea [Recovered/Resolved]
  - Fatigue [Not Recovered/Not Resolved]
  - Gastritis [Recovered/Resolved with Sequelae]
  - Gastrooesophageal reflux disease [Not Recovered/Not Resolved]
  - Headache [Recovered/Resolved]
  - Nightmare [Recovered/Resolved]
  - Panic attack [Not Recovered/Not Resolved]
  - Vomiting [Recovered/Resolved]
